FAERS Safety Report 16747683 (Version 4)
Quarter: 2020Q3

REPORT INFORMATION
  Report Type: Spontaneous
  Country: JP (occurrence: JP)
  Receive Date: 20190827
  Receipt Date: 20200703
  Transmission Date: 20201102
  Serious: Yes (Hospitalization)
  Sender: FDA-Public Use
  Company Number: JP-ASTRAZENECA-2019SF21146

PATIENT
  Age: 30595 Day
  Sex: Female
  Weight: 58 kg

DRUGS (10)
  1. TEPRENONE [Concomitant]
     Active Substance: TEPRENONE
     Indication: SPONDYLOLISTHESIS
     Dosage: 50.0MG AS REQUIRED
     Route: 048
     Dates: start: 201801, end: 20190816
  2. LOXOPROFEN [Concomitant]
     Active Substance: LOXOPROFEN
     Indication: SPONDYLOLISTHESIS
     Dosage: 60 MG, AS REQUIRED, SINCE BEFORE SEP 2017
     Route: 048
     Dates: end: 20190816
  3. GOSHAJINKIGAN [Concomitant]
     Active Substance: HERBALS
     Indication: NEUROPATHY PERIPHERAL
     Route: 048
     Dates: start: 201805, end: 20190816
  4. TELMISARTAN. [Concomitant]
     Active Substance: TELMISARTAN
     Indication: HYPERTENSION
     Route: 048
     Dates: start: 201806
  5. LYRICA [Concomitant]
     Active Substance: PREGABALIN
     Indication: SPONDYLOLISTHESIS
     Route: 048
     Dates: start: 201804
  6. NOVAMIN [Concomitant]
     Indication: VOMITING
     Route: 048
     Dates: start: 20190530
  7. LIMAPROST ALFADEX [Concomitant]
     Active Substance: LIMAPROST
     Indication: SPONDYLOLISTHESIS
     Route: 048
     Dates: start: 20190108
  8. NIFEDIPINE CR [Concomitant]
     Active Substance: NIFEDIPINE
     Indication: HYPERTENSION
     Dosage: 20 MG EVERY DAY, SINCE BEFORE SEP 2017
     Route: 048
  9. MAGNESIUM OXIDE. [Concomitant]
     Active Substance: MAGNESIUM OXIDE
     Indication: CONSTIPATION
     Route: 048
     Dates: start: 201711
  10. LYNPARZA [Suspect]
     Active Substance: OLAPARIB
     Indication: OVARIAN CANCER
     Route: 048
     Dates: start: 20190530, end: 20190816

REACTIONS (1)
  - Interstitial lung disease [Recovered/Resolved]

NARRATIVE: CASE EVENT DATE: 20190810
